FAERS Safety Report 8467017-1 (Version None)
Quarter: 2012Q2

REPORT INFORMATION
  Report Type: 
  Country: None (occurrence: None)
  Receive Date: 20120625
  Receipt Date: 20120625
  Transmission Date: 20120825
  Serious: Yes (Other)
  Sender: FDA-Public Use
  Company Number: None

PATIENT
  Age: 34 Year
  Sex: Female
  Weight: 128.8216 kg

DRUGS (1)
  1. VIIBRYD [Suspect]
     Dosage: 1 DAILY PO
     Route: 048

REACTIONS (1)
  - HICCUPS [None]
